FAERS Safety Report 4570170-3 (Version None)
Quarter: 2005Q1

REPORT INFORMATION
  Report Type: 
  Country: None (occurrence: None)
  Receive Date: 20050202
  Receipt Date: 20050528
  Transmission Date: 20050727
  Serious: Yes (Death)
  Sender: FDA-Public Use
  Company Number: F01200401260

PATIENT
  Age: 57 Year
  Sex: Female

DRUGS (7)
  1. CLOPIDOGREL BISULFATE [Suspect]
     Indication: ANTICOAGULANT THERAPY
     Dosage: LOADING DOSE OF 300 MG FOLLOWED BY 75 MG DAILY ORAL
     Route: 048
     Dates: start: 20040525, end: 20040525
  2. AAS (ACETYLSALICYLIC ACID) (ALSO SUSPECTED) [Concomitant]
  3. STREPTOKINASE (ALSO SUSPECTED) [Concomitant]
  4. NITROGLYCERINE (GLYCERYL TRINITRATE) [Concomitant]
  5. PROPRANOLOL [Concomitant]
  6. METOPROLOL [Concomitant]
  7. CAPTOPRIL [Concomitant]

REACTIONS (8)
  - CORONARY ARTERY OCCLUSION [None]
  - ELECTROMECHANICAL DISSOCIATION [None]
  - MEDIASTINAL HAEMORRHAGE [None]
  - MYOCARDIAL INFARCTION [None]
  - PROTHROMBIN TIME PROLONGED [None]
  - RESUSCITATION [None]
  - SUDDEN DEATH [None]
  - VENTRICLE RUPTURE [None]
